FAERS Safety Report 10069252 (Version 1)
Quarter: 2014Q2

REPORT INFORMATION
  Report Type: Spontaneous
  Country: US (occurrence: US)
  Receive Date: 20140409
  Receipt Date: 20140409
  Transmission Date: 20141212
  Serious: No
  Sender: FDA-Public Use
  Company Number: US-ASTELLAS-2014US001864

PATIENT
  Age: 46 Year
  Sex: Female

DRUGS (1)
  1. PROTOPIC [Suspect]
     Indication: APPLICATION SITE DISCOLOURATION
     Dosage: 0.1 %, UNKNOWN/D
     Route: 061
     Dates: start: 20140214, end: 201402

REACTIONS (8)
  - Off label use [Unknown]
  - Eye swelling [Unknown]
  - Lip swelling [Not Recovered/Not Resolved]
  - Vision blurred [Not Recovered/Not Resolved]
  - Headache [Not Recovered/Not Resolved]
  - Dizziness [Unknown]
  - Erythema [Not Recovered/Not Resolved]
  - Pruritus [Not Recovered/Not Resolved]
